FAERS Safety Report 24331035 (Version 2)
Quarter: 2024Q3

REPORT INFORMATION
  Report Type: Spontaneous
  Country: FR (occurrence: FR)
  Receive Date: 20240918
  Receipt Date: 20240925
  Transmission Date: 20241017
  Serious: Yes (Other)
  Sender: SANDOZ
  Company Number: FR-AFSSAPS-PC20180352

PATIENT
  Age: 1 Day
  Sex: Male
  Weight: 1.89 kg

DRUGS (64)
  1. AMOXICILLIN TRIHYDRATE [Suspect]
     Active Substance: AMOXICILLIN
     Dosage: 1 G, QD
     Route: 065
     Dates: start: 201708, end: 20180811
  2. AMOXICILLIN TRIHYDRATE [Suspect]
     Active Substance: AMOXICILLIN
     Indication: Foetal exposure during pregnancy
     Dosage: 3 G, QD
     Route: 064
     Dates: start: 20170804, end: 20170811
  3. AMOXICILLIN TRIHYDRATE [Suspect]
     Active Substance: AMOXICILLIN
     Dosage: 3 G, QD
     Route: 064
     Dates: start: 20170804, end: 20170914
  4. ARIPIPRAZOLE [Suspect]
     Active Substance: ARIPIPRAZOLE
     Indication: Foetal exposure during pregnancy
     Dosage: 10 MG, QD
     Route: 064
     Dates: start: 20160930, end: 20170224
  5. ARIPIPRAZOLE [Suspect]
     Active Substance: ARIPIPRAZOLE
     Indication: Bipolar I disorder
     Dosage: 50 MG
     Route: 064
     Dates: start: 201705
  6. FOLIC ACID [Suspect]
     Active Substance: FOLIC ACID
     Dosage: 5 MG, QD
     Route: 062
     Dates: start: 20170313, end: 20170914
  7. FOLIC ACID [Suspect]
     Active Substance: FOLIC ACID
     Indication: Normochromic normocytic anaemia
     Dosage: 5 MG, QD
     Route: 064
     Dates: start: 20170224, end: 20170914
  8. FOLIC ACID [Suspect]
     Active Substance: FOLIC ACID
     Indication: Foetal exposure during pregnancy
     Dosage: MATERNAL DOSE: 5 MG, QD
     Route: 064
     Dates: start: 20170224, end: 20170313
  9. AMITRIPTYLINE HYDROCHLORIDE [Suspect]
     Active Substance: AMITRIPTYLINE HYDROCHLORIDE
     Indication: Diabetic neuropathy
     Dosage: 2 DF
     Route: 064
     Dates: start: 20160930, end: 20170914
  10. LEUCOVORIN CALCIUM [Suspect]
     Active Substance: LEUCOVORIN CALCIUM
     Indication: Normochromic normocytic anaemia
     Dosage: 5 MG, QD
     Route: 064
     Dates: start: 20170224, end: 20170313
  11. PROPRANOLOL HYDROCHLORIDE [Suspect]
     Active Substance: PROPRANOLOL HYDROCHLORIDE
     Indication: Hypertension
     Dosage: 25 MG, QD
     Route: 064
     Dates: start: 20170720
  12. PROPRANOLOL HYDROCHLORIDE [Suspect]
     Active Substance: PROPRANOLOL HYDROCHLORIDE
     Dosage: 80 MG, QD
     Route: 064
     Dates: start: 20170516
  13. CHLORPROMAZINE HYDROCHLORIDE [Suspect]
     Active Substance: CHLORPROMAZINE HYDROCHLORIDE
     Indication: Product used for unknown indication
     Dosage: 25 MG, QD
     Route: 064
     Dates: start: 20170720
  14. POTASSIUM CHLORIDE [Suspect]
     Active Substance: POTASSIUM CHLORIDE
     Indication: Foetal exposure during pregnancy
     Dosage: 120 MG, QD
     Route: 064
     Dates: start: 20170804
  15. POTASSIUM CHLORIDE [Suspect]
     Active Substance: POTASSIUM CHLORIDE
     Indication: Hypokalaemia
     Dosage: 3600 MG, QD,1200 MG, QD (2 TO 3 TIMES PER DAY)
     Route: 064
     Dates: start: 20170804
  16. FUROSEMIDE [Suspect]
     Active Substance: FUROSEMIDE
     Indication: Hypertension
     Dosage: 40 MG, QD,(SCORED TABLET)
     Route: 064
     Dates: start: 20170516
  17. FUROSEMIDE [Suspect]
     Active Substance: FUROSEMIDE
     Indication: Foetal exposure during pregnancy
     Dosage: 40 MG, 50 MG UNK
     Route: 064
     Dates: start: 20170516
  18. FERROUS SULFATE [Suspect]
     Active Substance: FERROUS SULFATE
     Indication: Normochromic normocytic anaemia
     Dosage: 0.5 DF
     Route: 064
  19. LEUCOVORIN [Suspect]
     Active Substance: LEUCOVORIN\LEUCOVORIN CALCIUM
     Indication: Foetal exposure during pregnancy
     Dosage: 5 MG, QD
     Route: 064
     Dates: start: 20170224, end: 20170313
  20. LEUCOVORIN [Suspect]
     Active Substance: LEUCOVORIN\LEUCOVORIN CALCIUM
     Indication: Normochromic normocytic anaemia
  21. POLYETHYLENE GLYCOL 4000 [Suspect]
     Active Substance: POLYETHYLENE GLYCOL 4000
     Indication: Foetal exposure during pregnancy
     Dosage: 1 DOSAGE FORM, QD
     Route: 064
     Dates: start: 20160930, end: 20170405
  22. POLYETHYLENE GLYCOL 4000 [Suspect]
     Active Substance: POLYETHYLENE GLYCOL 4000
     Indication: Constipation
     Dosage: 120 MG, QD
     Route: 064
     Dates: start: 20160930, end: 20170224
  23. GABAPENTIN [Suspect]
     Active Substance: GABAPENTIN
     Indication: Foetal exposure during pregnancy
     Dosage: 400 MG, QD,MATERNAL DOSE: 1200 MG (400 MG AND 800 MG), QD
     Route: 064
     Dates: start: 20160930
  24. GABAPENTIN [Suspect]
     Active Substance: GABAPENTIN
     Indication: Diabetic neuropathy
     Dosage: 800 MG, QD
     Route: 064
     Dates: start: 20160930
  25. GABAPENTIN [Suspect]
     Active Substance: GABAPENTIN
     Dosage: 850 MG, QD
     Route: 064
     Dates: start: 20160930, end: 20170224
  26. GLICLAZIDE [Suspect]
     Active Substance: GLICLAZIDE
     Indication: Foetal exposure during pregnancy
     Dosage: 120 MG, QD
     Route: 064
     Dates: start: 20160930, end: 20170224
  27. HUMALOG [Suspect]
     Active Substance: INSULIN LISPRO
     Indication: Type 2 diabetes mellitus
     Dosage: 21 UG/M2, QD
     Route: 064
     Dates: start: 20170224, end: 20170224
  28. HUMALOG [Suspect]
     Active Substance: INSULIN LISPRO
     Indication: Foetal exposure during pregnancy
     Dosage: 7 UG/M2, QD
     Route: 064
     Dates: start: 20170224, end: 20170224
  29. INSULIN NOS [Suspect]
     Active Substance: INSULIN NOS
     Indication: Type 2 diabetes mellitus
     Dosage: UNK
     Route: 064
     Dates: start: 20161230, end: 20180224
  30. INSULIN NOS [Suspect]
     Active Substance: INSULIN NOS
     Dosage: UNK
     Route: 064
     Dates: start: 20160930, end: 20170224
  31. INSULIN LISPRO [Suspect]
     Active Substance: INSULIN LISPRO
     Dosage: 21 UG/M2, QD
     Route: 064
     Dates: start: 20170224, end: 20170224
  32. INSULIN LISPRO [Suspect]
     Active Substance: INSULIN LISPRO
     Indication: Type 2 diabetes mellitus
     Dosage: 7 UG/M2, QD
     Route: 064
     Dates: start: 20170224
  33. NICARDIPINE HYDROCHLORIDE [Suspect]
     Active Substance: NICARDIPINE HYDROCHLORIDE
     Indication: Hypertension
     Dosage: 1 DOSAGE FORM
     Route: 064
     Dates: start: 20170313, end: 20180405
  34. NICARDIPINE HYDROCHLORIDE [Suspect]
     Active Substance: NICARDIPINE HYDROCHLORIDE
     Indication: Foetal exposure during pregnancy
     Dosage: 50 MG, QD
     Route: 064
     Dates: start: 20170313, end: 20170405
  35. NICARDIPINE HYDROCHLORIDE [Suspect]
     Active Substance: NICARDIPINE HYDROCHLORIDE
     Dosage: 50 MG,2X/DAY
     Route: 064
     Dates: start: 20170405
  36. NICARDIPINE HYDROCHLORIDE [Suspect]
     Active Substance: NICARDIPINE HYDROCHLORIDE
     Dosage: UNK
     Route: 064
     Dates: start: 20170516
  37. LABETALOL HYDROCHLORIDE [Suspect]
     Active Substance: LABETALOL\LABETALOL HYDROCHLORIDE
     Indication: Foetal exposure during pregnancy
     Dosage: MATERNAL DOSE: 80 MG, QD
     Route: 064
     Dates: start: 20170516, end: 20170914
  38. LABETALOL HYDROCHLORIDE [Suspect]
     Active Substance: LABETALOL\LABETALOL HYDROCHLORIDE
     Indication: Hypertension
  39. LANTUS [Suspect]
     Active Substance: INSULIN GLARGINE
     Indication: Foetal exposure during pregnancy
     Dosage: 20 IU, QD
     Route: 064
     Dates: start: 20170224, end: 20170914
  40. LANTUS [Suspect]
     Active Substance: INSULIN GLARGINE
     Indication: Type 2 diabetes mellitus
  41. CHLORPROMAZINE [Suspect]
     Active Substance: CHLORPROMAZINE
     Indication: Foetal exposure during pregnancy
     Dosage: MATERNAL DOSE: 25 MG, QD
     Route: 064
     Dates: start: 20170720
  42. CHLORPROMAZINE [Suspect]
     Active Substance: CHLORPROMAZINE
     Indication: Bipolar I disorder
  43. AMITRIPTYLINE HYDROCHLORIDE [Suspect]
     Active Substance: AMITRIPTYLINE HYDROCHLORIDE
     Indication: Foetal exposure during pregnancy
     Dosage: MATERNAL DOSE: 2 DF, QD
     Route: 064
     Dates: start: 20160930, end: 20170914
  44. AMITRIPTYLINE HYDROCHLORIDE [Suspect]
     Active Substance: AMITRIPTYLINE HYDROCHLORIDE
     Indication: Diabetic neuropathy
  45. LASIX [Suspect]
     Active Substance: FUROSEMIDE
     Indication: Foetal exposure during pregnancy
     Dosage: MATERNAL DOSE: 40 MG, UNK
     Route: 064
  46. LEVEMIR [Suspect]
     Active Substance: INSULIN DETEMIR
     Indication: Foetal exposure during pregnancy
     Dosage: 10 IU, QD
     Route: 064
     Dates: start: 20160930, end: 20170224
  47. LEVEMIR [Suspect]
     Active Substance: INSULIN DETEMIR
     Indication: Type 2 diabetes mellitus
  48. METFORMIN HYDROCHLORIDE [Suspect]
     Active Substance: METFORMIN HYDROCHLORIDE
     Indication: Foetal exposure during pregnancy
     Dosage: 1700 MG, QD
     Route: 064
     Dates: start: 20160930
  49. METFORMIN HYDROCHLORIDE [Suspect]
     Active Substance: METFORMIN HYDROCHLORIDE
     Dosage: 850 MG, QD
     Route: 064
     Dates: end: 20170224
  50. METHYLDOPA [Suspect]
     Active Substance: METHYLDOPA
     Indication: Foetal exposure during pregnancy
     Dosage: 1500 MG, QD,PARENT ROUTE OF ADMINISTRATION TERMID ORAL
     Route: 064
     Dates: start: 20170720
  51. METHYLDOPA [Suspect]
     Active Substance: METHYLDOPA
     Indication: Hypertension
  52. NICARDIPINE [Suspect]
     Active Substance: NICARDIPINE
     Indication: Foetal exposure during pregnancy
     Dosage: 50 MG, Q12H
     Route: 064
     Dates: start: 20170405, end: 20170914
  53. NICARDIPINE [Suspect]
     Active Substance: NICARDIPINE
     Indication: Hypertension
     Dosage: 50 MG
     Route: 064
     Dates: start: 20170313
  54. NICOPATCH [Suspect]
     Active Substance: NICOTINE
     Indication: Foetal exposure during pregnancy
     Dosage: 7 MG, QD
     Route: 064
     Dates: start: 20170224, end: 20170516
  55. NICOPATCH [Suspect]
     Active Substance: NICOTINE
     Indication: Ex-tobacco user
  56. POTASSIUM CHLORIDE [Suspect]
     Active Substance: POTASSIUM CHLORIDE
     Indication: Ex-tobacco user
     Dosage: 7 MG, DAILY
     Route: 064
     Dates: start: 20170224, end: 20170516
  57. PROPRANOLOL HYDROCHLORIDE [Suspect]
     Active Substance: PROPRANOLOL HYDROCHLORIDE
     Indication: Hypertension
     Dosage: 80 MG, QD
     Route: 064
     Dates: start: 20170516
  58. RAMIPRIL [Suspect]
     Active Substance: RAMIPRIL
     Indication: Foetal exposure during pregnancy
     Dosage: 2.5 MG, QD
     Route: 064
     Dates: start: 20160930, end: 20170224
  59. RAMIPRIL [Suspect]
     Active Substance: RAMIPRIL
     Indication: Hypertension
  60. TRAMADOL HYDROCHLORIDE [Suspect]
     Active Substance: TRAMADOL HYDROCHLORIDE
     Indication: Diabetic neuropathy
     Dosage: 100 MG, QD
     Route: 064
     Dates: start: 20160930, end: 20170306
  61. TRAMADOL HYDROCHLORIDE [Suspect]
     Active Substance: TRAMADOL HYDROCHLORIDE
     Indication: Foetal exposure during pregnancy
     Dosage: MATERNAL DOSE: 50 MG, QD
     Route: 064
     Dates: start: 20160930, end: 20170306
  62. FERROUS SULFATE [Suspect]
     Active Substance: FERROUS SULFATE
     Indication: Foetal exposure during pregnancy
     Dosage: MATERNAL DOSE: 1 DF, QD
     Route: 064
     Dates: start: 20170313, end: 20170914
  63. FERROUS SULFATE [Suspect]
     Active Substance: FERROUS SULFATE
     Indication: Normochromic normocytic anaemia
     Dosage: 1 DF
     Route: 064
     Dates: start: 20170313, end: 20170914
  64. INSULIN LISPRO [Concomitant]
     Active Substance: INSULIN LISPRO
     Indication: Foetal exposure during pregnancy
     Dosage: UNK
     Route: 064
     Dates: start: 20161230, end: 20170224

REACTIONS (6)
  - Premature baby [Not Recovered/Not Resolved]
  - Foetal disorder [Unknown]
  - Neutropenia neonatal [Not Recovered/Not Resolved]
  - Low birth weight baby [Unknown]
  - Foetal exposure during pregnancy [Unknown]
  - Maternal exposure during pregnancy [Unknown]

NARRATIVE: CASE EVENT DATE: 20170704
